FAERS Safety Report 9601955 (Version 1)
Quarter: 2013Q4

REPORT INFORMATION
  Report Type: Spontaneous
  Country: US (occurrence: None)
  Receive Date: 20131004
  Receipt Date: 20131004
  Transmission Date: 20140711
  Serious: Yes (Other)
  Sender: FDA-Public Use
  Company Number: None

PATIENT
  Age: 16 Year
  Sex: Male
  Weight: 67 kg

DRUGS (1)
  1. MINOCYCLINE [Suspect]
     Indication: ACNE
     Dosage: 1 TAB
     Route: 048
     Dates: start: 20120815, end: 20120830

REACTIONS (3)
  - Headache [None]
  - Cognitive disorder [None]
  - CSF protein increased [None]
